FAERS Safety Report 4947170-4 (Version None)
Quarter: 2006Q1

REPORT INFORMATION
  Report Type: 
  Country: None (occurrence: None)
  Receive Date: 20060201
  Receipt Date: 20051010
  Transmission Date: 20060701
  Serious: No
  Sender: FDA-Public Use
  Company Number: 2005PV002888

PATIENT
  Age: 72 Year
  Sex: Male
  Weight: 154.223 kg

DRUGS (4)
  1. BYETTA [Suspect]
     Indication: DIABETES MELLITUS NON-INSULIN-DEPENDENT
     Dosage: 5 MCG; BID; SC
     Route: 058
     Dates: start: 20051008
  2. ESSENTIAL FATTY ACID COMPLEX [Concomitant]
  3. AMARYL [Concomitant]
  4. METFORMIN [Concomitant]

REACTIONS (4)
  - BLOOD GLUCOSE DECREASED [None]
  - BLOOD GLUCOSE INCREASED [None]
  - PUPILS UNEQUAL [None]
  - VISION BLURRED [None]
